FAERS Safety Report 17242298 (Version 1)
Quarter: 2020Q1

REPORT INFORMATION
  Report Type: Spontaneous
  Country: US (occurrence: US)
  Receive Date: 20200106
  Receipt Date: 20200106
  Transmission Date: 20200409
  Serious: Yes (Hospitalization)
  Sender: FDA-Public Use
  Company Number: None

PATIENT
  Age: 78 Year
  Sex: Female

DRUGS (16)
  1. METAMUCIL [Concomitant]
     Active Substance: PLANTAGO SEED
  2. OMEGA-3 ACIDS [Concomitant]
     Active Substance: OMEGA-3 FATTY ACIDS
  3. TOLTERODINE [Concomitant]
     Active Substance: TOLTERODINE
  4. GABAPENTIN. [Concomitant]
     Active Substance: GABAPENTIN
  5. LEVETIRACETA SOL [Concomitant]
  6. MONTELUKAST [Concomitant]
     Active Substance: MONTELUKAST SODIUM
  7. IPRATROPIUM/SOL ALBUTER [Concomitant]
  8. TADALAFIL. [Suspect]
     Active Substance: TADALAFIL
     Indication: PULMONARY ARTERIAL HYPERTENSION
     Route: 048
     Dates: start: 20190629
  9. ALBUTEROL. [Concomitant]
     Active Substance: ALBUTEROL
  10. ARICEPT [Concomitant]
     Active Substance: DONEPEZIL HYDROCHLORIDE
  11. LAXATIVE [Concomitant]
     Active Substance: UNSPECIFIED INGREDIENT
  12. ESCITALOPRAM [Concomitant]
     Active Substance: ESCITALOPRAM OXALATE
  13. MOMETASONE [Concomitant]
     Active Substance: MOMETASONE
  14. STOOL SOFTNER [Concomitant]
  15. LOSARTAN. [Concomitant]
     Active Substance: LOSARTAN
  16. SYNTHROID [Concomitant]
     Active Substance: LEVOTHYROXINE SODIUM

REACTIONS (1)
  - Cardiac failure congestive [None]
